FAERS Safety Report 9884619 (Version 1)
Quarter: 2014Q1

REPORT INFORMATION
  Report Type: Spontaneous
  Country: US (occurrence: None)
  Receive Date: 20140205
  Receipt Date: 20140205
  Transmission Date: 20141002
  Serious: Yes (Death)
  Sender: FDA-Public Use
  Company Number: IMP_07180_2014

PATIENT
  Age: 31 Year
  Sex: Male

DRUGS (2)
  1. BUPROPION [Suspect]
     Indication: PRODUCT USED FOR UNKNOWN INDICATION
     Dosage: (DF UNKNOWN) UNKNOWN UNTIL NOT CONTINUING?
  2. HEROIN [Suspect]
     Indication: PRODUCT USED FOR UNKNOWN INDICATION
     Dosage: (DF UNKNOWN) UNKNOWN UNTIL NOT CONTINUING??

REACTIONS (2)
  - Poisoning [None]
  - Drug abuse [None]
